FAERS Safety Report 24943721 (Version 4)
Quarter: 2025Q1

REPORT INFORMATION
  Report Type: Spontaneous
  Country: RU (occurrence: RU)
  Receive Date: 20250207
  Receipt Date: 20250326
  Transmission Date: 20250409
  Serious: Yes (Other)
  Sender: NOVARTIS
  Company Number: RU-002147023-NVSC2025RU019159

PATIENT
  Age: 59 Year
  Sex: Female

DRUGS (1)
  1. BROLUCIZUMAB [Suspect]
     Active Substance: BROLUCIZUMAB
     Indication: Post thrombotic retinopathy
     Dosage: 6 MG, QD
     Route: 031
     Dates: start: 20250117, end: 20250117

REACTIONS (3)
  - Keratouveitis [Recovering/Resolving]
  - Visual acuity reduced [Recovering/Resolving]
  - Eye irritation [Recovering/Resolving]

NARRATIVE: CASE EVENT DATE: 20250117
